FAERS Safety Report 8128887-X (Version None)
Quarter: 2012Q1

REPORT INFORMATION
  Report Type: 
  Country: None (occurrence: None)
  Receive Date: 20120210
  Receipt Date: 20120202
  Transmission Date: 20120608
  Serious: Yes (Other)
  Sender: FDA-Public Use
  Company Number: DE-PFIZER INC-2012028727

PATIENT
  Age: 53 Year
  Sex: Male

DRUGS (2)
  1. TORSEMIDE [Interacting]
  2. VIAGRA [Suspect]
     Indication: ERECTILE DYSFUNCTION
     Dosage: 100 MG, UNK

REACTIONS (3)
  - DRUG INTERACTION [None]
  - DEPENDENCE ON ENABLING MACHINE OR DEVICE [None]
  - DRUG EFFECT DECREASED [None]
